FAERS Safety Report 25990913 (Version 2)
Quarter: 2025Q4

REPORT INFORMATION
  Report Type: Spontaneous
  Country: US (occurrence: US)
  Receive Date: 20251103
  Receipt Date: 20251121
  Transmission Date: 20260118
  Serious: No
  Sender: GRIFOLS
  Company Number: US-IGSA-BIG0039185

PATIENT
  Age: 28 Year
  Sex: Male
  Weight: 85.261 kg

DRUGS (10)
  1. GAMUNEX-C [Suspect]
     Active Substance: HUMAN IMMUNOGLOBULIN G
     Indication: Wiskott-Aldrich syndrome
     Dosage: 15 GRAM, Q.4WK.
     Route: 042
     Dates: start: 20251024
  2. GAMUNEX-C [Suspect]
     Active Substance: HUMAN IMMUNOGLOBULIN G
     Indication: Off label use
     Dosage: 45 GRAM, Q.4WK.
     Route: 042
  3. GAMUNEX-C [Suspect]
     Active Substance: HUMAN IMMUNOGLOBULIN G
     Dosage: 5 GRAM
     Route: 042
  4. GAMUNEX-C [Suspect]
     Active Substance: HUMAN IMMUNOGLOBULIN G
     Dosage: 10 GRAM
     Route: 042
  5. SOLU-MEDROL [Concomitant]
     Active Substance: METHYLPREDNISOLONE SODIUM SUCCINATE
     Indication: Premedication
     Dosage: UNK
     Dates: start: 20251024, end: 20251024
  6. TYLENOL [Concomitant]
     Active Substance: ACETAMINOPHEN
     Indication: Premedication
     Dosage: 500 MILLIGRAM
     Route: 048
  7. ZYRTEC [Concomitant]
     Active Substance: CETIRIZINE HYDROCHLORIDE
     Indication: Premedication
     Dosage: 10 MILLIGRAM
     Route: 048
  8. BENADRYL [Concomitant]
     Active Substance: DIPHENHYDRAMINE HYDROCHLORIDE
     Indication: Premedication
     Dosage: 50 MILLIGRAM
     Route: 042
  9. SOLU-CORTEF [Concomitant]
     Active Substance: HYDROCORTISONE SODIUM SUCCINATE
     Indication: Premedication
     Dosage: 50 MILLIGRAM
     Route: 042
  10. SODIUM CHLORIDE [Concomitant]
     Active Substance: SODIUM CHLORIDE
     Indication: Premedication
     Dosage: 500 MILLIGRAM

REACTIONS (8)
  - Pruritus [Recovered/Resolved]
  - Rash [Recovered/Resolved]
  - Wheezing [Recovered/Resolved]
  - Cough [Recovered/Resolved]
  - Urticaria [Recovering/Resolving]
  - Dyspnoea [Recovering/Resolving]
  - Therapy interrupted [Recovered/Resolved]
  - Insurance issue [Recovered/Resolved]

NARRATIVE: CASE EVENT DATE: 20251001
